FAERS Safety Report 25515786 (Version 1)
Quarter: 2025Q3

REPORT INFORMATION
  Report Type: Spontaneous
  Country: GB (occurrence: GB)
  Receive Date: 20250704
  Receipt Date: 20250704
  Transmission Date: 20251020
  Serious: Yes (Other)
  Sender: RANBAXY
  Company Number: GB-SUN PHARMACEUTICAL INDUSTRIES LTD-2025R1-514767

PATIENT
  Age: 18 Year
  Sex: Female

DRUGS (5)
  1. HYDROXYCHLOROQUINE [Suspect]
     Active Substance: HYDROXYCHLOROQUINE
     Indication: Systemic lupus erythematosus
     Route: 065
  2. ASPIRIN [Suspect]
     Active Substance: ASPIRIN
     Indication: Systemic lupus erythematosus
     Route: 065
  3. FOLIC ACID [Suspect]
     Active Substance: FOLIC ACID
     Indication: Systemic lupus erythematosus
     Route: 065
  4. PREDNISOLONE [Suspect]
     Active Substance: PREDNISOLONE
     Indication: Systemic lupus erythematosus
     Route: 065
  5. OCRELIZUMAB [Suspect]
     Active Substance: OCRELIZUMAB
     Indication: Systemic lupus erythematosus
     Route: 065

REACTIONS (3)
  - Exposure during pregnancy [Unknown]
  - Drug ineffective [Unknown]
  - Live birth [Unknown]
